FAERS Safety Report 14029901 (Version 3)
Quarter: 2017Q4

REPORT INFORMATION
  Report Type: Spontaneous
  Country: US (occurrence: US)
  Receive Date: 20171002
  Receipt Date: 20171109
  Transmission Date: 20180321
  Serious: Yes (Death)
  Sender: FDA-Public Use
  Company Number: US-PFIZER INC-2017421048

PATIENT
  Age: 48 Year
  Sex: Female

DRUGS (3)
  1. AVASTIN [Suspect]
     Active Substance: BEVACIZUMAB
     Indication: OVARIAN CANCER STAGE IV
     Dosage: UNK
     Dates: start: 201708
  2. CARBOPLATIN. [Suspect]
     Active Substance: CARBOPLATIN
     Indication: OVARIAN CANCER STAGE IV
     Dosage: UNK
     Dates: start: 201708
  3. TAXOL [Suspect]
     Active Substance: PACLITAXEL
     Indication: OVARIAN CANCER STAGE IV
     Dosage: UNK
     Dates: start: 201708

REACTIONS (2)
  - Death [Fatal]
  - Neoplasm progression [Unknown]
